FAERS Safety Report 10461997 (Version 1)
Quarter: 2014Q3

REPORT INFORMATION
  Report Type: Spontaneous
  Country: FI (occurrence: FI)
  Receive Date: 20140918
  Receipt Date: 20140918
  Transmission Date: 20150326
  Serious: Yes (Life-Threatening)
  Sender: FDA-Public Use
  Company Number: 2014SP002945

PATIENT
  Age: 48 Year
  Sex: Female

DRUGS (9)
  1. MONTELUKAST SODIUM. [Concomitant]
     Active Substance: MONTELUKAST SODIUM
  2. SPIRIVA RESPIMAT [Concomitant]
     Active Substance: TIOTROPIUM BROMIDE
  3. AVAMYS [Concomitant]
     Active Substance: FLUTICASONE FUROATE
  4. LOSATRIX COMP [Concomitant]
  5. HEINIX [Concomitant]
  6. SEREVENT [Concomitant]
     Active Substance: SALMETEROL XINAFOATE
  7. ALVESCO [Suspect]
     Active Substance: CICLESONIDE
     Indication: ASTHMA
     Route: 055
     Dates: start: 20140829, end: 20140830
  8. NEXIUM [Concomitant]
     Active Substance: ESOMEPRAZOLE MAGNESIUM
  9. PANADOL                            /00020001/ [Concomitant]

REACTIONS (3)
  - Bronchospasm [Not Recovered/Not Resolved]
  - Angioedema [Not Recovered/Not Resolved]
  - Laryngeal oedema [Not Recovered/Not Resolved]

NARRATIVE: CASE EVENT DATE: 20140829
